FAERS Safety Report 14986407 (Version 1)
Quarter: 2018Q2

REPORT INFORMATION
  Report Type: Report from Study
  Country: None (occurrence: US)
  Receive Date: 20180607
  Receipt Date: 20180607
  Transmission Date: 20180711
  Serious: Yes (Hospitalization, Other)
  Sender: FDA-Public Use
  Company Number: US-ABBVIE-18K-163-2291028-00

PATIENT
  Age: 84 Year
  Sex: Female
  Weight: 77.18 kg

DRUGS (14)
  1. PRAVASTATIN. [Concomitant]
     Active Substance: PRAVASTATIN
     Indication: PERIPHERAL ARTERIAL OCCLUSIVE DISEASE
  2. METHOTREXATE. [Concomitant]
     Active Substance: METHOTREXATE
     Indication: RHEUMATOID ARTHRITIS
  3. PREDNISONE. [Concomitant]
     Active Substance: PREDNISONE
     Indication: RHEUMATOID ARTHRITIS
  4. CARVEDILOL. [Concomitant]
     Active Substance: CARVEDILOL
     Indication: PERIPHERAL ARTERIAL OCCLUSIVE DISEASE
  5. CLARITHROMYCIN. [Concomitant]
     Active Substance: CLARITHROMYCIN
     Indication: BRONCHIECTASIS
  6. HUMIRA [Suspect]
     Active Substance: ADALIMUMAB
     Route: 058
  7. COENZYME Q10 [Concomitant]
     Active Substance: UBIDECARENONE
     Indication: MUSCLE SPASMS
  8. LEUCOVORIN. [Concomitant]
     Active Substance: LEUCOVORIN
     Indication: RHEUMATOID ARTHRITIS
  9. DOTERRA TRIEASE [Concomitant]
     Indication: OSTEOPOROSIS
  10. VITAMIN D [Concomitant]
     Active Substance: CHOLECALCIFEROL
     Indication: VITAMIN D DEFICIENCY
  11. BIAXIN [Concomitant]
     Active Substance: CLARITHROMYCIN
     Indication: BRONCHIECTASIS
  12. HUMIRA [Suspect]
     Active Substance: ADALIMUMAB
     Indication: RHEUMATOID ARTHRITIS
     Route: 058
     Dates: start: 2013, end: 20180523
  13. IRON [Concomitant]
     Active Substance: IRON
     Indication: IRON DEFICIENCY ANAEMIA
  14. CEFTIN [Concomitant]
     Active Substance: CEFUROXIME AXETIL
     Indication: BRONCHIECTASIS

REACTIONS (7)
  - Spinal compression fracture [Not Recovered/Not Resolved]
  - Pulmonary embolism [Recovered/Resolved]
  - Herpes zoster [Recovered/Resolved]
  - Osteoarthritis [Not Recovered/Not Resolved]
  - Rheumatoid arthritis [Recovering/Resolving]
  - Chest pain [Not Recovered/Not Resolved]
  - Contrast media allergy [Unknown]

NARRATIVE: CASE EVENT DATE: 201803
